FAERS Safety Report 4872988-6 (Version None)
Quarter: 2005Q4

REPORT INFORMATION
  Report Type: 
  Country: None (occurrence: None)
  Receive Date: 20051201
  Receipt Date: 20050714
  Transmission Date: 20060501
  Serious: No
  Sender: FDA-Public Use
  Company Number: 2005PV000355

PATIENT
  Age: 47 Year
  Sex: Female
  Weight: 79.3795 kg

DRUGS (10)
  1. BYETTA [Suspect]
     Indication: DIABETES MELLITUS NON-INSULIN-DEPENDENT
     Dosage: 5 MCG;BID;SC
     Route: 058
     Dates: start: 20050601
  2. LIPITOR [Concomitant]
  3. AVANDIA [Concomitant]
  4. METFORMIN [Concomitant]
  5. DIOVAN [Concomitant]
  6. LANTUS [Concomitant]
  7. AMBIEN [Concomitant]
  8. ASPIRIN [Concomitant]
  9. CITRUCEL [Concomitant]
  10. CITRACAL [Concomitant]

REACTIONS (7)
  - DIZZINESS [None]
  - FATIGUE [None]
  - GASTROOESOPHAGEAL REFLUX DISEASE [None]
  - HEADACHE [None]
  - NAUSEA [None]
  - SNEEZING [None]
  - VOMITING [None]
